FAERS Safety Report 4408831-9 (Version None)
Quarter: 2004Q3

REPORT INFORMATION
  Report Type: 
  Country: None (occurrence: None)
  Receive Date: 20040727
  Receipt Date: 20040622
  Transmission Date: 20050211
  Serious: Yes (Hospitalization)
  Sender: FDA-Public Use
  Company Number: JP-BRISTOL-MYERS SQUIBB COMPANY-12622627

PATIENT
  Age: 71 Year
  Sex: Female

DRUGS (11)
  1. TAXOL [Suspect]
     Indication: OVARIAN CANCER
     Route: 042
     Dates: start: 20040407, end: 20040407
  2. PARAPLATIN [Suspect]
     Indication: OVARIAN CANCER
     Route: 042
     Dates: start: 20040317, end: 20040618
  3. DEXAMETHASONE [Concomitant]
     Indication: PREMEDICATION
     Dosage: 20 MG 28 APR-18 JUN 2004 3 DAYS
     Route: 042
     Dates: start: 20040317, end: 20040407
  4. DIPHENHYDRAMINE HCL [Concomitant]
     Indication: PREMEDICATION
     Route: 048
     Dates: start: 20040317, end: 20040407
  5. RANITIDINE HCL [Concomitant]
     Indication: PREMEDICATION
     Route: 042
     Dates: start: 20040317, end: 20040407
  6. GRANISETRON HCL [Concomitant]
     Route: 042
     Dates: start: 20040317, end: 20040618
  7. AZULENE SULFONATE SODIUM [Concomitant]
     Route: 048
     Dates: start: 20040304, end: 20040618
  8. SENNOSIDE [Concomitant]
     Route: 048
     Dates: start: 20040306, end: 20040618
  9. POLYCARBOPHIL CALCIUM [Concomitant]
     Route: 048
     Dates: start: 20040306, end: 20040618
  10. DOMPERIDONE [Concomitant]
     Route: 048
     Dates: end: 20040618
  11. PIRENZEPINE HCL [Concomitant]
     Route: 048
     Dates: end: 20040404

REACTIONS (5)
  - ALOPECIA [None]
  - DYSURIA [None]
  - NEUTROPHIL COUNT DECREASED [None]
  - PLATELET COUNT DECREASED [None]
  - VOMITING [None]
